FAERS Safety Report 11757919 (Version 1)
Quarter: 2015Q4

REPORT INFORMATION
  Report Type: Spontaneous
  Country: US (occurrence: None)
  Receive Date: 20151119
  Receipt Date: 20151119
  Transmission Date: 20160304
  Serious: No
  Sender: FDA-Public Use
  Company Number: None

PATIENT

DRUGS (1)
  1. MEDROXYPROGESTERONE 150MG COLONIA NATURAL PHARMACY [Suspect]
     Active Substance: MEDROXYPROGESTERONE
     Route: 030

REACTIONS (2)
  - Liquid product physical issue [None]
  - Product substitution issue [None]
